FAERS Safety Report 5958537-X (Version None)
Quarter: 2008Q4

REPORT INFORMATION
  Report Type: 
  Country: None (occurrence: None)
  Receive Date: 20081119
  Receipt Date: 20081118
  Transmission Date: 20090506
  Serious: Yes (Death, Life-Threatening, Hospitalization, Other)
  Sender: FDA-Public Use
  Company Number: PHHY2008JP16827

PATIENT
  Sex: Female
  Weight: 52 kg

DRUGS (12)
  1. ZOMETA [Suspect]
     Indication: HYPERCALCAEMIA
     Dosage: 4 MG
     Route: 042
     Dates: start: 20080101, end: 20080101
  2. ZOMETA [Suspect]
     Dosage: UNK
     Route: 042
     Dates: start: 20080605, end: 20080605
  3. AREDIA [Suspect]
     Indication: HYPERCALCAEMIA
     Dosage: UNK
     Route: 042
     Dates: start: 20080711, end: 20080722
  4. OLMETEC [Concomitant]
     Dosage: 20 MG
     Route: 048
     Dates: start: 20080425, end: 20080716
  5. RABEPRAZOLE SODIUM [Concomitant]
     Dosage: 10 MG
     Route: 048
     Dates: start: 20080425, end: 20080716
  6. LOXONIN [Concomitant]
     Dosage: 180 MG
     Route: 048
     Dates: start: 20080425, end: 20080716
  7. PANTOSIN [Concomitant]
     Dosage: 300 MG
     Route: 048
     Dates: start: 20080425, end: 20080716
  8. MAGMITT KENEI [Concomitant]
     Dosage: 1980 MG
     Route: 048
     Dates: start: 20080425, end: 20080716
  9. NAUZELIN [Concomitant]
     Dosage: 30 MG
     Route: 048
     Dates: start: 20080425, end: 20080716
  10. NOVAMIN [Concomitant]
     Dosage: 15 MG
     Route: 048
     Dates: start: 20080425, end: 20080716
  11. FENTANYL CITRATE [Concomitant]
     Dosage: TD
     Route: 048
     Dates: start: 20080516, end: 20080725
  12. OXINORM [Concomitant]
     Dosage: UNK
     Route: 048
     Dates: start: 20080425, end: 20080716

REACTIONS (9)
  - DELIRIUM [None]
  - GENERAL PHYSICAL HEALTH DETERIORATION [None]
  - MALIGNANT NEOPLASM PROGRESSION [None]
  - METASTASES TO BONE [None]
  - METASTASES TO CENTRAL NERVOUS SYSTEM [None]
  - METASTASES TO LIVER [None]
  - METASTATIC PAIN [None]
  - OSTEOMYELITIS [None]
  - PAIN IN JAW [None]
